FAERS Safety Report 6803136-0 (Version None)
Quarter: 2010Q2

REPORT INFORMATION
  Report Type: 
  Country: None (occurrence: None)
  Receive Date: 20100628
  Receipt Date: 20100622
  Transmission Date: 20101027
  Serious: Yes (Other)
  Sender: FDA-Public Use
  Company Number: A0866577A

PATIENT
  Age: 81 Year
  Sex: Female

DRUGS (11)
  1. FLOVENT [Suspect]
     Indication: ASTHMA
     Dosage: 2PUFF TWICE PER DAY
     Route: 055
  2. SEREVENT [Suspect]
     Indication: ASTHMA
     Dosage: 1PUFF TWICE PER DAY
     Route: 055
  3. CEFUROXIME AXETIL [Suspect]
     Indication: LUNG DISORDER
     Dosage: 500MG TWICE PER DAY
     Route: 048
     Dates: start: 20100501, end: 20100601
  4. LISINOPRIL [Concomitant]
  5. ASPIRIN [Concomitant]
  6. PREMARIN [Concomitant]
  7. LEVOTHYROXINE SODIUM [Concomitant]
  8. VITAMIN B-12 [Concomitant]
  9. DARVOCET [Concomitant]
  10. NEURONTIN [Concomitant]
  11. HYDROCODONE [Concomitant]

REACTIONS (11)
  - CHEST DISCOMFORT [None]
  - CROUP INFECTIOUS [None]
  - DRUG INEFFECTIVE [None]
  - FATIGUE [None]
  - LUNG DISORDER [None]
  - NEURALGIA [None]
  - PAIN [None]
  - PNEUMONIA [None]
  - PRODUCTIVE COUGH [None]
  - TEMPOROMANDIBULAR JOINT SYNDROME [None]
  - UPPER RESPIRATORY TRACT INFECTION [None]
